FAERS Safety Report 14355351 (Version 1)
Quarter: 2018Q1

REPORT INFORMATION
  Report Type: Spontaneous
  Country: US (occurrence: US)
  Receive Date: 20180104
  Receipt Date: 20180104
  Transmission Date: 20180509
  Serious: Yes (Other)
  Sender: FDA-Public Use
  Company Number: None

PATIENT
  Age: 64 Year
  Sex: Male
  Weight: 82.8 kg

DRUGS (2)
  1. HYDROCHLOROTHAIZIDE [Concomitant]
  2. XALKORI [Suspect]
     Active Substance: CRIZOTINIB
     Indication: NEOPLASM MALIGNANT
     Route: 048
     Dates: start: 20170920

REACTIONS (2)
  - Peripheral swelling [None]
  - Oedema [None]

NARRATIVE: CASE EVENT DATE: 20180104
